FAERS Safety Report 19667386 (Version 1)
Quarter: 2021Q3

REPORT INFORMATION
  Report Type: Spontaneous
  Country: IT (occurrence: IT)
  Receive Date: 20210806
  Receipt Date: 20210806
  Transmission Date: 20211014
  Serious: Yes (Other)
  Sender: FDA-Public Use
  Company Number: IT-SUN PHARMACEUTICAL INDUSTRIES LTD-2021R1-306923

PATIENT
  Age: 58 Year
  Sex: Male

DRUGS (2)
  1. CISPLATIN. [Suspect]
     Active Substance: CISPLATIN
     Indication: MINIMAL RESIDUAL DISEASE
     Dosage: 200 MILLIGRAM, UNK
     Route: 065
  2. DOXORUBICIN [Suspect]
     Active Substance: DOXORUBICIN
     Indication: MINIMAL RESIDUAL DISEASE
     Dosage: 75 MILLIGRAM, UNK
     Route: 065

REACTIONS (6)
  - Neutrophilia [Recovered/Resolved]
  - Leukocytosis [Recovered/Resolved]
  - Polymerase chain reaction positive [Recovered/Resolved]
  - Lymphopenia [Recovered/Resolved]
  - Hyperthermia [Recovered/Resolved]
  - Anaemia [Recovered/Resolved]
